FAERS Safety Report 15487561 (Version 1)
Quarter: 2018Q4

REPORT INFORMATION
  Report Type: Spontaneous
  Country: US (occurrence: US)
  Receive Date: 20181011
  Receipt Date: 20181011
  Transmission Date: 20190205
  Serious: Yes (Hospitalization)
  Sender: FDA-Public Use
  Company Number: US-JNJFOC-20181011765

PATIENT
  Age: 52 Year
  Sex: Male
  Weight: 104.78 kg

DRUGS (1)
  1. INVOKANA [Suspect]
     Active Substance: CANAGLIFLOZIN
     Indication: TYPE 2 DIABETES MELLITUS
     Route: 048
     Dates: start: 20140516

REACTIONS (6)
  - Osteomyelitis chronic [Unknown]
  - Toe amputation [Unknown]
  - Inappropriate schedule of product administration [Unknown]
  - Diabetic foot [Unknown]
  - Gangrene [Unknown]
  - Off label use [Unknown]

NARRATIVE: CASE EVENT DATE: 20140516
